FAERS Safety Report 13322106 (Version 1)
Quarter: 2017Q1

REPORT INFORMATION
  Report Type: Spontaneous
  Country: US (occurrence: US)
  Receive Date: 20170310
  Receipt Date: 20170310
  Transmission Date: 20170428
  Serious: Yes (Hospitalization)
  Sender: FDA-Public Use
  Company Number: None

PATIENT
  Age: 61 Year
  Sex: Male
  Weight: 130 kg

DRUGS (5)
  1. IPILIMUMAB 1MG/KG [Suspect]
     Active Substance: IPILIMUMAB
     Indication: ADJUVANT THERAPY
     Dosage: 130 MG Q 6 WEEKS IV
     Route: 042
     Dates: start: 20160818, end: 20161222
  2. NIVOLUMAB 3MG/KG [Suspect]
     Active Substance: NIVOLUMAB
     Indication: MALIGNANT MELANOMA
     Route: 042
     Dates: start: 20160818, end: 20170103
  3. IPILIMUMAB 1MG/KG [Suspect]
     Active Substance: IPILIMUMAB
     Indication: MALIGNANT MELANOMA
     Dosage: 130 MG Q 6 WEEKS IV
     Route: 042
     Dates: start: 20160818, end: 20161222
  4. LACTATED RINGERS INFUSIOIN [Concomitant]
  5. NIVOLUMAB 3MG/KG [Suspect]
     Active Substance: NIVOLUMAB
     Indication: ADJUVANT THERAPY
     Route: 042
     Dates: start: 20160818, end: 20170103

REACTIONS (6)
  - Diarrhoea [None]
  - Colitis [None]
  - Immune system disorder [None]
  - Dehydration [None]
  - Hepatitis [None]
  - Liver function test increased [None]

NARRATIVE: CASE EVENT DATE: 20170110
